FAERS Safety Report 5776123-1 (Version None)
Quarter: 2008Q2

REPORT INFORMATION
  Report Type: 
  Country: None (occurrence: None)
  Receive Date: 20080617
  Receipt Date: 20080609
  Transmission Date: 20081010
  Serious: Yes (Other)
  Sender: FDA-Public Use
  Company Number: GB-AMGEN-US286588

PATIENT
  Age: 11 Year
  Sex: Male

DRUGS (6)
  1. ENBREL [Suspect]
     Indication: JUVENILE ARTHRITIS
     Route: 058
     Dates: start: 20070301
  2. METHOTREXATE [Suspect]
     Indication: JUVENILE ARTHRITIS
     Route: 058
     Dates: start: 20051123, end: 20060124
  3. METHOTREXATE [Suspect]
     Route: 058
     Dates: start: 20060125, end: 20060306
  4. METHOTREXATE [Suspect]
     Route: 058
     Dates: start: 20060307, end: 20060903
  5. METHOTREXATE [Suspect]
     Dosage: SWITCHED TO ORAL 20MG ONCE WEEKLY
     Route: 048
     Dates: start: 20060904, end: 20070321
  6. METHOTREXATE [Suspect]
     Dosage: SWITCHED BACK TO SUBCUTANEOUS 12.5MG TWICE WEEKLY
     Route: 058
     Dates: start: 20070322

REACTIONS (3)
  - AMNESIA [None]
  - DISTURBANCE IN ATTENTION [None]
  - MEMORY IMPAIRMENT [None]
